FAERS Safety Report 19092148 (Version 2)
Quarter: 2021Q2

REPORT INFORMATION
  Report Type: Spontaneous
  Country: JP (occurrence: JP)
  Receive Date: 20210405
  Receipt Date: 20210414
  Transmission Date: 20210717
  Serious: Yes (Other)
  Sender: FDA-Public Use
  Company Number: JP-ACCORD-221282

PATIENT
  Age: 5 Decade
  Sex: Female

DRUGS (2)
  1. CAPECITABINE. [Suspect]
     Active Substance: CAPECITABINE
     Indication: RECTAL CANCER STAGE IV
     Dosage: 28 G/M2, 2,000 MG/M2/DAY ON DAYS 1?14, EVERY 3 WEEKS,140 G PER SQ M
  2. OXALIPLATIN. [Suspect]
     Active Substance: OXALIPLATIN
     Indication: RECTAL CANCER STAGE IV
     Dosage: 130 MG/M2, ON DAY 1, EVERY 3 WEEKS FOR A TOTAL OF 5 CYCLES

REACTIONS (2)
  - Skin toxicity [Unknown]
  - Hypertriglyceridaemia [Recovered/Resolved]
